FAERS Safety Report 10767042 (Version 5)
Quarter: 2017Q3

REPORT INFORMATION
  Report Type: Spontaneous
  Country: US (occurrence: US)
  Receive Date: 20150205
  Receipt Date: 20170906
  Transmission Date: 20171127
  Serious: Yes (Hospitalization, Disabling, Other)
  Sender: FDA-Public Use
  Company Number: US-SA-2015SA011171

PATIENT
  Age: 90 Year
  Sex: Female
  Weight: 61 kg

DRUGS (9)
  1. SINGULAIR [Suspect]
     Active Substance: MONTELUKAST SODIUM
     Indication: HYPERSENSITIVITY
     Route: 065
  2. SIMVASTATIN. [Concomitant]
     Active Substance: SIMVASTATIN
     Route: 065
  3. FEXOFENADINE HYDROCHLORIDE. [Suspect]
     Active Substance: FEXOFENADINE HYDROCHLORIDE
     Dosage: TAKEN FROM: 2 YEARS
     Route: 048
  4. FLUTICASONE. [Suspect]
     Active Substance: FLUTICASONE
     Route: 065
  5. RESTASIS [Suspect]
     Active Substance: CYCLOSPORINE
     Route: 065
  6. FLUCASON [Concomitant]
     Route: 065
  7. FEXOFENADINE HYDROCHLORIDE. [Suspect]
     Active Substance: FEXOFENADINE HYDROCHLORIDE
     Dosage: TAKEN FROM: 2 YEARS
     Route: 048
  8. FEXOFENADINE HYDROCHLORIDE. [Suspect]
     Active Substance: FEXOFENADINE HYDROCHLORIDE
     Dosage: TAKEN FROM: 2 YEARS
     Route: 048
  9. MIRALAX [Concomitant]
     Active Substance: POLYETHYLENE GLYCOL 3350

REACTIONS (14)
  - Pancreatitis [Unknown]
  - Rheumatoid arthritis [Unknown]
  - Drug ineffective [Unknown]
  - Urinary bladder polyp [Unknown]
  - Abdominal tenderness [Unknown]
  - Pain [Unknown]
  - Abdominal distension [Unknown]
  - Constipation [Unknown]
  - Influenza [Unknown]
  - Hypoacusis [Unknown]
  - Memory impairment [Unknown]
  - Expired product administered [Unknown]
  - Spinal fracture [Unknown]
  - Visual impairment [Unknown]
